FAERS Safety Report 24336974 (Version 1)
Quarter: 2024Q3

REPORT INFORMATION
  Report Type: Spontaneous
  Country: US (occurrence: US)
  Receive Date: 20240919
  Receipt Date: 20240919
  Transmission Date: 20241017
  Serious: Yes (Other)
  Sender: SANOFI AVENTIS
  Company Number: US-SA-2024SA267292

PATIENT
  Sex: Male
  Weight: 82.18 kg

DRUGS (1)
  1. DUPIXENT [Suspect]
     Active Substance: DUPILUMAB
     Indication: Illness
     Dosage: 300 MG, QOW
     Route: 058

REACTIONS (8)
  - Myocardial infarction [Unknown]
  - Brain hypoxia [Unknown]
  - Nasal obstruction [Unknown]
  - Epistaxis [Unknown]
  - Abdominal pain [Unknown]
  - Pyrexia [Unknown]
  - Skin burning sensation [Unknown]
  - Surgery [Unknown]
